FAERS Safety Report 18800817 (Version 14)
Quarter: 2023Q4

REPORT INFORMATION
  Report Type: Report from Study
  Country: CA (occurrence: CA)
  Receive Date: 20210128
  Receipt Date: 20231012
  Transmission Date: 20240110
  Serious: Yes (Hospitalization, Other)
  Sender: FDA-Public Use
  Company Number: CA-NOVARTISPH-PHHY2018CA046185

PATIENT
  Age: 71 Year
  Sex: Male

DRUGS (3)
  1. SANDOSTATIN LAR DEPOT [Suspect]
     Active Substance: OCTREOTIDE ACETATE
     Indication: Carcinoid tumour
     Dosage: 30 MG, QMO
     Route: 030
     Dates: start: 20180608
  2. SANDOSTATIN LAR DEPOT [Suspect]
     Active Substance: OCTREOTIDE ACETATE
     Dosage: 60 MG, Q4W (4 WEEKS)
     Route: 030
     Dates: start: 20180608
  3. SANDOSTATIN LAR DEPOT [Suspect]
     Active Substance: OCTREOTIDE ACETATE
     Dosage: UNK
     Route: 065
     Dates: start: 20231001

REACTIONS (20)
  - Rectal haemorrhage [Unknown]
  - Hepatic neoplasm [Unknown]
  - Weight abnormal [Unknown]
  - General physical condition abnormal [Unknown]
  - COVID-19 [Unknown]
  - Rectal cancer [Unknown]
  - Blood pressure increased [Unknown]
  - Diverticulitis [Unknown]
  - Dystonia [Unknown]
  - Erythema [Unknown]
  - Tremor [Recovering/Resolving]
  - Needle issue [Unknown]
  - Product contamination [Unknown]
  - Device leakage [Unknown]
  - Syringe issue [Unknown]
  - Weight decreased [Unknown]
  - Nausea [Unknown]
  - Vomiting [Unknown]
  - Incorrect dose administered [Unknown]
  - Product dose omission issue [Unknown]

NARRATIVE: CASE EVENT DATE: 20180608
